FAERS Safety Report 5417855-4 (Version None)
Quarter: 2007Q3

REPORT INFORMATION
  Report Type: 
  Country: None (occurrence: None)
  Receive Date: 20070817
  Receipt Date: 20070809
  Transmission Date: 20080115
  Serious: Yes (Hospitalization)
  Sender: FDA-Public Use
  Company Number: US-JNJFOC-20070802901

PATIENT
  Sex: Male
  Weight: 117.94 kg

DRUGS (13)
  1. FENTANYL TRANSDERMAL SYSTEM [Suspect]
     Indication: PAIN
     Route: 062
  2. DURAGESIC-100 [Suspect]
     Indication: PAIN
     Route: 062
  3. SKELAXIN [Concomitant]
     Indication: ANTIINFLAMMATORY THERAPY
     Route: 065
  4. EFFEXOR XR [Concomitant]
     Indication: DEPRESSION
     Route: 065
  5. EFFEXOR XR [Concomitant]
     Indication: ATTENTION DEFICIT/HYPERACTIVITY DISORDER
     Route: 065
  6. PROTONIX [Concomitant]
     Indication: STOMACH DISCOMFORT
     Route: 048
  7. NORVASC [Concomitant]
     Indication: BLOOD CHOLESTEROL
     Route: 048
  8. NORVASC [Concomitant]
     Indication: HYPERTENSION
     Route: 048
  9. ZOCOR [Concomitant]
     Indication: BLOOD CHOLESTEROL
     Route: 048
  10. ZOCOR [Concomitant]
     Indication: HYPERTENSION
     Route: 048
  11. ASPIRIN [Concomitant]
     Indication: HYPERTENSION
     Route: 048
  12. ZANAFLEX [Concomitant]
     Indication: SLEEP DISORDER
     Dosage: AT BED TIME
     Route: 048
  13. MOBIC [Concomitant]
     Indication: ANTIINFLAMMATORY THERAPY
     Route: 048

REACTIONS (2)
  - MENISCUS LESION [None]
  - WRONG TECHNIQUE IN DRUG USAGE PROCESS [None]
